FAERS Safety Report 16263270 (Version 1)
Quarter: 2019Q2

REPORT INFORMATION
  Report Type: Spontaneous
  Country: RU (occurrence: RU)
  Receive Date: 20190502
  Receipt Date: 20190502
  Transmission Date: 20190711
  Serious: Yes (Other)
  Sender: FDA-Public Use
  Company Number: RU-SA-2019SA113738

PATIENT
  Age: 54 Year

DRUGS (14)
  1. FLUDARABINE PHOSPHATE. [Suspect]
     Active Substance: FLUDARABINE PHOSPHATE
     Indication: HAEMATOPOIETIC STEM CELL MOBILISATION
     Dosage: 3.2 MG/KG, QD
     Route: 065
  2. MOZOBIL [Suspect]
     Active Substance: PLERIXAFOR
     Indication: HAEMATOPOIETIC STEM CELL MOBILISATION
     Dosage: 3.2 MG/KG, QD
     Route: 058
  3. MOZOBIL [Suspect]
     Active Substance: PLERIXAFOR
     Dosage: 240 UG/KG, 6 HOURS BEFORE ADMINSTRATION OF FLUDARABINE
     Route: 058
  4. BUSULFAN. [Suspect]
     Active Substance: BUSULFAN
     Dosage: UNKNOWN MG / KG / UNKNOWN MG / M2 / UNKNOWN MCG / KG
  5. CAMPATH [Concomitant]
     Active Substance: ALEMTUZUMAB
     Indication: PROPHYLAXIS AGAINST GRAFT VERSUS HOST DISEASE
  6. MOZOBIL [Suspect]
     Active Substance: PLERIXAFOR
     Dosage: UNKNOWN MG / KG / UNKNOWN MG / M2 / UNKNOWN MCG / KG
  7. FLUDARABINE PHOSPHATE. [Suspect]
     Active Substance: FLUDARABINE PHOSPHATE
     Dosage: 240 UG/KG 6 HOURS BEFORE ADMINITRAION OF FLUDARABINUM
     Route: 065
  8. MOZOBIL [Suspect]
     Active Substance: PLERIXAFOR
     Dosage: 50 MG/M2, QD
     Route: 058
  9. FLUDARABINE PHOSPHATE. [Suspect]
     Active Substance: FLUDARABINE PHOSPHATE
     Dosage: 50 MG/M2, QD
     Route: 065
  10. FLUDARABINE PHOSPHATE. [Suspect]
     Active Substance: FLUDARABINE PHOSPHATE
     Dosage: UNKNOWN MG / KG / UNKNOWN MG / M2 / UNKNOWN MCG / KG
  11. CYCLOSPORIN [Concomitant]
     Active Substance: CYCLOSPORINE
     Indication: PROPHYLAXIS AGAINST GRAFT VERSUS HOST DISEASE
     Route: 065
  12. BUSULFAN. [Suspect]
     Active Substance: BUSULFAN
     Dosage: 50 MG/M2
     Route: 065
  13. BUSULFAN. [Suspect]
     Active Substance: BUSULFAN
     Dosage: 240 UG/KG 6 HOURS BEFORE ADMINITRAION OF FLUDARABINUM
  14. BUSULFAN. [Suspect]
     Active Substance: BUSULFAN
     Indication: HAEMATOPOIETIC STEM CELL MOBILISATION
     Dosage: 3.2 MG/KG, QD
     Route: 065

REACTIONS (3)
  - Febrile neutropenia [Unknown]
  - Mucosal inflammation [Unknown]
  - Herpes simplex [Unknown]
